FAERS Safety Report 4386631-6 (Version None)
Quarter: 2004Q2

REPORT INFORMATION
  Report Type: 
  Country: None (occurrence: None)
  Receive Date: 20040623
  Receipt Date: 20040614
  Transmission Date: 20050107
  Serious: Yes (Hospitalization)
  Sender: FDA-Public Use
  Company Number: 2004034054

PATIENT
  Age: 66 Year
  Sex: Male

DRUGS (2)
  1. LIPITOR [Suspect]
     Indication: CORONARY ARTERY DISEASE
     Dosage: 10 MG (10 MG, 1 IN 1 D), ORAL
     Route: 048
     Dates: start: 20040401, end: 20040401
  2. ACETYLSALICYLIC ACID SRT [Concomitant]

REACTIONS (4)
  - HEPATITIS [None]
  - HERPES ZOSTER [None]
  - MEDICATION ERROR [None]
  - WOUND [None]
